FAERS Safety Report 8445374-X (Version None)
Quarter: 2012Q2

REPORT INFORMATION
  Report Type: 
  Country: None (occurrence: None)
  Receive Date: 20120618
  Receipt Date: 20120607
  Transmission Date: 20120825
  Serious: Yes (Hospitalization)
  Sender: FDA-Public Use
  Company Number: FI-NOVOPROD-353502

PATIENT
  Age: 57 Year
  Sex: Male
  Weight: 94.3 kg

DRUGS (3)
  1. VICTOZA [Suspect]
     Dosage: 3.0 MG, QD
     Route: 058
     Dates: end: 20120506
  2. VICTOZA [Suspect]
     Indication: OBESITY
     Dosage: 0.6 MG, QD
     Route: 058
     Dates: start: 20110621
  3. VICTOZA [Suspect]
     Dosage: 3.0 MG, QD
     Route: 058
     Dates: start: 20120522

REACTIONS (1)
  - COLITIS ULCERATIVE [None]
